FAERS Safety Report 24218744 (Version 5)
Quarter: 2024Q4

REPORT INFORMATION
  Report Type: Spontaneous
  Country: US (occurrence: US)
  Receive Date: 20240816
  Receipt Date: 20241231
  Transmission Date: 20250114
  Serious: Yes (Hospitalization, Other)
  Sender: SANOFI AVENTIS
  Company Number: US-SA-SAC20240814000389

PATIENT
  Age: 66 Year
  Sex: Male
  Weight: 89 kg

DRUGS (5)
  1. CAPRELSA [Suspect]
     Active Substance: VANDETANIB
     Indication: Thyroid cancer
     Dosage: 300 MG, QOW
     Route: 048
     Dates: start: 20240210, end: 2024
  2. IBUPROFEN [Concomitant]
     Active Substance: IBUPROFEN
     Dosage: UNK
  3. HYDROCODONE [Concomitant]
     Active Substance: HYDROCODONE
     Dosage: UNK
  4. TYLENOL [Concomitant]
     Active Substance: ACETAMINOPHEN
     Dosage: UNK
  5. ONDANSETRON [Concomitant]
     Active Substance: ONDANSETRON
     Dosage: UNK

REACTIONS (4)
  - Pneumonia [Unknown]
  - Hepatic neoplasm [Unknown]
  - Hepatic pain [Unknown]
  - Hepatitis A [Unknown]

NARRATIVE: CASE EVENT DATE: 20240101
